FAERS Safety Report 10420577 (Version 1)
Quarter: 2014Q3

REPORT INFORMATION
  Report Type: Spontaneous
  Country: US (occurrence: None)
  Receive Date: 20140714
  Receipt Date: 20140714
  Transmission Date: 20150326
  Serious: No
  Sender: FDA-Public Use
  Company Number: 2014US003328

PATIENT
  Age: 64 Year
  Sex: Male

DRUGS (3)
  1. WARFARIN (WARFARIN) [Concomitant]
     Active Substance: WARFARIN
  2. ICLUSIG [Suspect]
     Active Substance: PONATINIB
     Indication: CHRONIC MYELOID LEUKAEMIA
     Route: 048
  3. PLAVIS (CLOPIDOGREL BISULFATE) [Concomitant]

REACTIONS (3)
  - Epistaxis [None]
  - Skin exfoliation [None]
  - Blood disorder [None]

NARRATIVE: CASE EVENT DATE: 201404
